FAERS Safety Report 9294787 (Version 1)
Quarter: 2013Q1

REPORT INFORMATION
  Report Type: Spontaneous
  Country: US (occurrence: None)
  Receive Date: 20121227
  Receipt Date: 20121227
  Transmission Date: 20140127
  Serious: No
  Sender: FDA-Public Use
  Company Number: PHEH2012US022470

PATIENT
  Sex: Male
  Weight: 90.7 kg

DRUGS (8)
  1. AFINITOR [Suspect]
     Indication: PANCREATIC CARCINOMA
     Route: 048
  2. AFINITOR [Suspect]
     Indication: HEPATIC CANCER
     Route: 048
  3. AMLODIPINE (AMLODIPINE) [Concomitant]
  4. LANTUS (INSULIN GLARGINE) [Concomitant]
  5. APIDRA (INSULIN GLULISINE) [Concomitant]
  6. SIMVASTATIN (SIMVASTATIN) [Concomitant]
  7. WELLBUTRIN (BUPROPION HYDROCHLORIDE) [Concomitant]
  8. METOPROLOL (METOPROLOL) [Concomitant]

REACTIONS (2)
  - Furuncle [None]
  - Stomatitis [None]
